FAERS Safety Report 8588155-9 (Version None)
Quarter: 2012Q3

REPORT INFORMATION
  Report Type: 
  Country: None (occurrence: None)
  Receive Date: 20120813
  Receipt Date: 20120802
  Transmission Date: 20120928
  Serious: Yes (Other)
  Sender: FDA-Public Use
  Company Number: GB-AMGEN-GBRSP2012050028

PATIENT
  Age: 45 Year
  Sex: Male

DRUGS (4)
  1. OMEPRAZOLE [Concomitant]
     Dosage: UNK
  2. HEPARIN [Concomitant]
     Dosage: UNK
  3. MESALAMINE [Concomitant]
     Dosage: UNK
  4. ENBREL [Suspect]
     Indication: PSORIASIS
     Dosage: 50 MG, WEEKLY
     Route: 058
     Dates: start: 20080304

REACTIONS (2)
  - ANTIPHOSPHOLIPID SYNDROME [None]
  - PULMONARY EMBOLISM [None]
